FAERS Safety Report 10965223 (Version 2)
Quarter: 2017Q1

REPORT INFORMATION
  Report Type: Spontaneous
  Country: US (occurrence: US)
  Receive Date: 20150330
  Receipt Date: 20170314
  Transmission Date: 20170428
  Serious: No
  Sender: FDA-Public Use
  Company Number: US-PFIZER INC-2015106827

PATIENT
  Age: 60 Year
  Sex: Female
  Weight: 82 kg

DRUGS (3)
  1. LEFLUNOMIDE. [Concomitant]
     Active Substance: LEFLUNOMIDE
     Dosage: 20 MG, 1X/DAY
  2. XELJANZ [Suspect]
     Active Substance: TOFACITINIB CITRATE
     Indication: RHEUMATOID ARTHRITIS
     Dosage: 5 MG, 2X/DAY
  3. FLUOXETINE [Concomitant]
     Active Substance: FLUOXETINE HYDROCHLORIDE
     Dosage: 20 MG, 1X/DAY (ONE AT NIGHT)

REACTIONS (2)
  - Otitis externa [Recovered/Resolved]
  - Neuropathy peripheral [Unknown]
